FAERS Safety Report 8028862-X (Version None)
Quarter: 2012Q1

REPORT INFORMATION
  Report Type: 
  Country: None (occurrence: None)
  Receive Date: 20120106
  Receipt Date: 20120103
  Transmission Date: 20120608
  Serious: Yes (Hospitalization)
  Sender: FDA-Public Use
  Company Number: US-GLAXOSMITHKLINE-A0930692A

PATIENT
  Age: 60 Year
  Sex: Male
  Weight: 105.9 kg

DRUGS (10)
  1. AVANDIA [Suspect]
     Indication: DIABETES MELLITUS
     Dosage: 4MG TWICE PER DAY
     Route: 048
     Dates: start: 20051122, end: 20061215
  2. NIASPAN [Concomitant]
  3. ATACAND [Concomitant]
  4. CIALIS [Concomitant]
  5. CADUET [Concomitant]
  6. ENDAL [Concomitant]
  7. CELEBREX [Concomitant]
  8. NORVASC [Concomitant]
  9. GLUCOPHAGE [Concomitant]
  10. PROTONIX [Concomitant]

REACTIONS (2)
  - CEREBROVASCULAR ACCIDENT [None]
  - ATRIAL FIBRILLATION [None]
